FAERS Safety Report 6585641-8 (Version None)
Quarter: 2010Q1

REPORT INFORMATION
  Report Type: 
  Country: None (occurrence: None)
  Receive Date: 20100217
  Receipt Date: 20100203
  Transmission Date: 20100710
  Serious: Yes (Hospitalization)
  Sender: FDA-Public Use
  Company Number: US-TEVA-224180USA

PATIENT
  Sex: Female
  Weight: 58.96 kg

DRUGS (7)
  1. CETIRIZINE HCL AND PSEUDOEPHEDRINE [Suspect]
     Indication: SINUS CONGESTION
     Route: 048
     Dates: start: 20090127, end: 20100201
  2. CETIRIZINE HCL AND PSEUDOEPHEDRINE [Interacting]
     Indication: SINUS HEADACHE
  3. OXYCODONE HCL [Interacting]
     Indication: PSORIATIC ARTHROPATHY
     Route: 048
  4. OXYCODONE HCL [Interacting]
     Indication: ARTHRALGIA
  5. CANNABIS SATIVA [Interacting]
     Indication: PSORIATIC ARTHROPATHY
     Route: 054
  6. CANNABIS SATIVA [Interacting]
     Indication: ARTHRALGIA
  7. BUPROPION HCL [Interacting]
     Indication: DEPRESSION

REACTIONS (4)
  - DRUG INTERACTION [None]
  - DRUG SCREEN POSITIVE [None]
  - LOSS OF CONSCIOUSNESS [None]
  - VOMITING [None]
